FAERS Safety Report 14968963 (Version 1)
Quarter: 2018Q2

REPORT INFORMATION
  Report Type: Spontaneous
  Country: SE (occurrence: SE)
  Receive Date: 20180604
  Receipt Date: 20180604
  Transmission Date: 20180711
  Serious: Yes (Other)
  Sender: FDA-Public Use
  Company Number: SE-ARALEZ PHARMACEUTICALS R+D INC.-2018-ARA-001372

PATIENT
  Age: 83 Year
  Sex: Female

DRUGS (1)
  1. METOPROLOL SUCCINATE. [Suspect]
     Active Substance: METOPROLOL SUCCINATE
     Indication: HEART RATE INCREASED
     Dosage: UNK
     Route: 048
     Dates: start: 1982

REACTIONS (4)
  - Eye symptom [Unknown]
  - Hypertension [Unknown]
  - Blindness transient [Unknown]
  - Angina pectoris [Unknown]
